FAERS Safety Report 8155509-4 (Version None)
Quarter: 2012Q1

REPORT INFORMATION
  Report Type: 
  Country: None (occurrence: None)
  Receive Date: 20120215
  Receipt Date: 20120208
  Transmission Date: 20120608
  Serious: Yes (Hospitalization)
  Sender: FDA-Public Use
  Company Number: 2011SP047066

PATIENT
  Age: 67 Year
  Sex: Female

DRUGS (3)
  1. ACTOS [Concomitant]
  2. REBETOL [Suspect]
     Indication: HEPATITIS C
     Dosage: PO
     Route: 048
     Dates: start: 20100201, end: 20110201
  3. PEG-INTRON [Suspect]
     Indication: HEPATITIS C
     Dosage: SC
     Route: 058
     Dates: start: 20100201, end: 20110201

REACTIONS (3)
  - PLEURAL EFFUSION [None]
  - ASCITES [None]
  - PERITONEAL TUBERCULOSIS [None]
